FAERS Safety Report 9438665 (Version 1)
Quarter: 2013Q3

REPORT INFORMATION
  Report Type: Report from Study
  Country: US (occurrence: US)
  Receive Date: 20130802
  Receipt Date: 20130802
  Transmission Date: 20140515
  Serious: Yes (Hospitalization)
  Sender: FDA-Public Use
  Company Number: US-ABBOTT-13P-163-1114217-00

PATIENT
  Age: 60 Year
  Sex: Male

DRUGS (2)
  1. HUMIRA [Suspect]
     Indication: CROHN^S DISEASE
     Dates: start: 20130219, end: 20130625
  2. LIALDA [Concomitant]
     Indication: CROHN^S DISEASE

REACTIONS (2)
  - Cellulitis [Recovering/Resolving]
  - Scar [Recovering/Resolving]
